FAERS Safety Report 4336260-5 (Version None)
Quarter: 2004Q2

REPORT INFORMATION
  Report Type: 
  Country: None (occurrence: None)
  Receive Date: 20040407
  Receipt Date: 20040329
  Transmission Date: 20050107
  Serious: Yes (Life-Threatening, Hospitalization)
  Sender: FDA-Public Use
  Company Number: DE_040313274

PATIENT
  Age: 42 Year
  Sex: Male

DRUGS (1)
  1. ZYPREXA [Suspect]
     Indication: PSYCHOTIC DISORDER
     Dosage: 10 MG DAY
     Dates: start: 20030101, end: 20040101

REACTIONS (4)
  - ABNORMAL BEHAVIOUR [None]
  - CHILLS [None]
  - RHABDOMYOLYSIS [None]
  - SOMNOLENCE [None]
